FAERS Safety Report 19581948 (Version 2)
Quarter: 2021Q3

REPORT INFORMATION
  Report Type: Spontaneous
  Country: US (occurrence: US)
  Receive Date: 20210719
  Receipt Date: 20210804
  Transmission Date: 20211014
  Serious: Yes (Other)
  Sender: FDA-Public Use
  Company Number: NVSC2021US153284

PATIENT
  Sex: Male

DRUGS (13)
  1. MAGNESIUM OXIDE. [Concomitant]
     Active Substance: MAGNESIUM OXIDE
     Indication: PRODUCT USED FOR UNKNOWN INDICATION
     Dosage: 400 MG, QD (0DAYS, 0 REFILLS)
     Route: 048
  2. MEDROL [Concomitant]
     Active Substance: METHYLPREDNISOLONE
     Indication: SPONDYLITIS
     Dosage: UNK, UNKNOWN
     Route: 065
  3. VITAMIN D3 [Concomitant]
     Active Substance: CHOLECALCIFEROL
     Indication: PRODUCT USED FOR UNKNOWN INDICATION
     Dosage: 10 UG, BID (400 UNIT, 0 DAYS, 0 REFILLS)
     Route: 048
  4. LISINOPRIL. [Concomitant]
     Active Substance: LISINOPRIL
     Indication: PRODUCT USED FOR UNKNOWN INDICATION
     Dosage: 2.5 MG, QD (0DAYS, 0 REFILLS)
     Route: 048
  5. MEDROL [Concomitant]
     Active Substance: METHYLPREDNISOLONE
     Indication: SPINAL OSTEOARTHRITIS
  6. RECLAST [Suspect]
     Active Substance: ZOLEDRONIC ACID
     Indication: METASTASES TO BONE
     Dosage: 5 MG
     Route: 042
     Dates: start: 20201214
  7. SALONPAS PAIN RELIEF [Concomitant]
     Active Substance: MENTHOL\METHYL SALICYLATE
     Indication: PRODUCT USED FOR UNKNOWN INDICATION
     Dosage: UNK (PAIN RELIEVING EXTERNAL PATCH, 0 DAYS, 0 REFILLS)
     Route: 065
  8. ALLOPURINOL. [Concomitant]
     Active Substance: ALLOPURINOL
     Indication: PRODUCT USED FOR UNKNOWN INDICATION
     Dosage: UNK (0 DAYS 0 REFILLS)
     Route: 065
  9. CENTRUM [Concomitant]
     Active Substance: VITAMINS
     Indication: PRODUCT USED FOR UNKNOWN INDICATION
     Dosage: UNK (0 DAYS, 0 REFILLS)
     Route: 065
  10. NEXIUM [Concomitant]
     Active Substance: ESOMEPRAZOLE MAGNESIUM
     Indication: PRODUCT USED FOR UNKNOWN INDICATION
     Dosage: 20 MG, Q24H (DELAYED RELEASE AS DIRECTED 1 BEFORE DINNER, 0 DAYS, 0 REFILLS)
     Route: 065
  11. FLOMAX [Concomitant]
     Active Substance: TAMSULOSIN HYDROCHLORIDE
     Indication: PRODUCT USED FOR UNKNOWN INDICATION
     Dosage: 0.4 MG, BID (0DAYS, 0 REFILLS)
     Route: 048
  12. ZOCOR [Concomitant]
     Active Substance: SIMVASTATIN
     Indication: PRODUCT USED FOR UNKNOWN INDICATION
     Dosage: 20 MG, UNKNOWN (0 DAYS, 0 REFILLS)
     Route: 065
  13. TOVIAZ [Concomitant]
     Active Substance: FESOTERODINE FUMARATE
     Indication: PRODUCT USED FOR UNKNOWN INDICATION
     Dosage: 4 MG, QD (0 DAYS 0 REFILLS)
     Route: 048

REACTIONS (22)
  - Kyphoscoliosis [Unknown]
  - Spinal osteoarthritis [Unknown]
  - Deafness [Unknown]
  - Nephrolithiasis [Unknown]
  - Facial pain [Unknown]
  - Tympanic membrane disorder [Unknown]
  - Essential hypertension [Unknown]
  - Osteoporosis [Unknown]
  - Syndesmophyte [Unknown]
  - Muscle spasms [Unknown]
  - Burning sensation [Recovered/Resolved]
  - Back pain [Not Recovered/Not Resolved]
  - Giant cell arteritis [Unknown]
  - Occipital neuralgia [Unknown]
  - Osteonecrosis of jaw [Not Recovered/Not Resolved]
  - Aortic valve incompetence [Unknown]
  - Neck pain [Not Recovered/Not Resolved]
  - Myalgia [Not Recovered/Not Resolved]
  - Spinal pain [Unknown]
  - Headache [Unknown]
  - Malaise [Unknown]
  - Joint stiffness [Recovered/Resolved]
